FAERS Safety Report 21319507 (Version 1)
Quarter: 2022Q3

REPORT INFORMATION
  Report Type: Spontaneous
  Country: US (occurrence: US)
  Receive Date: 20220911
  Receipt Date: 20220911
  Transmission Date: 20221027
  Serious: No
  Sender: FDA-Public Use
  Company Number: US-SA-SAC20220905001648

PATIENT
  Age: 36 Year
  Sex: Female

DRUGS (9)
  1. DUPIXENT [Suspect]
     Active Substance: DUPILUMAB
     Indication: Dermatitis allergic
     Dosage: 300 MG, QOW
     Route: 058
     Dates: start: 20220819
  2. BENADRYL [Concomitant]
     Active Substance: DIPHENHYDRAMINE HYDROCHLORIDE
  3. MIRTAZAPINE [Concomitant]
     Active Substance: MIRTAZAPINE
  4. BIOTIN [Concomitant]
     Active Substance: BIOTIN
  5. SINGULAIR [Concomitant]
     Active Substance: MONTELUKAST SODIUM
  6. ALLEGRA ALLERGY [Concomitant]
     Active Substance: FEXOFENADINE HYDROCHLORIDE
  7. MAGNESIUM [Concomitant]
     Active Substance: MAGNESIUM
  8. HERBALS\TURMERIC [Concomitant]
     Active Substance: HERBALS\TURMERIC
  9. VITAMINS NOS [Concomitant]
     Active Substance: VITAMINS
     Dosage: WOMEN^S DAILY MULTIVITAMIN

REACTIONS (2)
  - Thyroid hormones increased [Unknown]
  - Product use in unapproved indication [Unknown]

NARRATIVE: CASE EVENT DATE: 20220819
